FAERS Safety Report 6309179-8 (Version None)
Quarter: 2009Q3

REPORT INFORMATION
  Report Type: 
  Country: None (occurrence: None)
  Receive Date: 20090814
  Receipt Date: 20090622
  Transmission Date: 20100115
  Serious: No
  Sender: FDA-Public Use
  Company Number: A0790146A

PATIENT
  Age: 61 Year
  Sex: Male
  Weight: 108.2 kg

DRUGS (4)
  1. COREG CR [Suspect]
     Indication: HYPERTENSION
     Dosage: 10MG PER DAY
     Route: 048
     Dates: start: 20090522
  2. PLAVIX [Concomitant]
     Route: 048
     Dates: start: 20070615
  3. CRESTOR [Concomitant]
     Route: 048
     Dates: start: 20070615
  4. ASPIRIN [Concomitant]
     Route: 048
     Dates: start: 20070615

REACTIONS (2)
  - DYSPNOEA [None]
  - OEDEMA [None]
